FAERS Safety Report 15280840 (Version 1)
Quarter: 2018Q3

REPORT INFORMATION
  Report Type: Spontaneous
  Country: US (occurrence: US)
  Receive Date: 20180731
  Receipt Date: 20180731
  Transmission Date: 20181010
  Serious: Yes (Hospitalization)
  Sender: FDA-Public Use
  Company Number: None

PATIENT
  Age: 72 Year
  Sex: Female

DRUGS (33)
  1. CLINDAMYCIN. [Concomitant]
     Active Substance: CLINDAMYCIN
  2. CROMOLYN [Concomitant]
     Active Substance: CROMOLYN
  3. QVAR [Concomitant]
     Active Substance: BECLOMETHASONE DIPROPIONATE
  4. HYDROCO/APAP [Concomitant]
     Active Substance: ACETAMINOPHEN\HYDROCODONE
  5. METOPROL TAR [Concomitant]
  6. TALTZ [Suspect]
     Active Substance: IXEKIZUMAB
     Indication: PSORIATIC ARTHROPATHY
     Dosage: ?          OTHER FREQUENCY:Q2W FOR 3MONTHS T;?
     Route: 058
     Dates: start: 20180524
  7. AMITRIPTYLINE [Concomitant]
     Active Substance: AMITRIPTYLINE
  8. VITAMIN D [Concomitant]
     Active Substance: CHOLECALCIFEROL
  9. BUPROPION. [Concomitant]
     Active Substance: BUPROPION
  10. CEPHALEXIN. [Concomitant]
     Active Substance: CEPHALEXIN
  11. CLOBETASOL [Concomitant]
     Active Substance: CLOBETASOL
  12. ENBREL [Concomitant]
     Active Substance: ETANERCEPT
  13. LEVOTHYROXIN [Concomitant]
     Active Substance: LEVOTHYROXINE
  14. NYSTATIN. [Concomitant]
     Active Substance: NYSTATIN
  15. OXYCODONE [Concomitant]
     Active Substance: OXYCODONE
  16. TEMAZEPAM. [Concomitant]
     Active Substance: TEMAZEPAM
  17. ALLERGY [Concomitant]
     Active Substance: UNSPECIFIED INGREDIENT
  18. PROVENTIL [Concomitant]
     Active Substance: ALBUTEROL
  19. TESTOSTERONE. [Concomitant]
     Active Substance: TESTOSTERONE
  20. WELLBUTRIN [Concomitant]
     Active Substance: BUPROPION HYDROCHLORIDE
  21. AMLODIPINE [Concomitant]
     Active Substance: AMLODIPINE BESYLATE
  22. POT CHLORIDE [Concomitant]
     Active Substance: POTASSIUM CHLORIDE
  23. SYNTHROID [Concomitant]
     Active Substance: LEVOTHYROXINE SODIUM
  24. ATENOLOL. [Concomitant]
     Active Substance: ATENOLOL
  25. DOVONEX [Concomitant]
     Active Substance: CALCIPOTRIENE
  26. DOXYCYC MONO [Concomitant]
     Active Substance: DOXYCYCLINE
  27. GABAPENTIN. [Concomitant]
     Active Substance: GABAPENTIN
  28. INDAPAMIDE. [Concomitant]
     Active Substance: INDAPAMIDE
  29. KLOR?CON M10 [Concomitant]
     Active Substance: POTASSIUM CHLORIDE
  30. AUG BETAMET [Concomitant]
  31. ESTAZOLAM. [Concomitant]
     Active Substance: ESTAZOLAM
  32. FUROSEMIDE. [Concomitant]
     Active Substance: FUROSEMIDE
  33. NASONEX [Concomitant]
     Active Substance: MOMETASONE FUROATE

REACTIONS (4)
  - Vulvovaginal burning sensation [None]
  - Rash [None]
  - Pain [None]
  - Anorectal discomfort [None]

NARRATIVE: CASE EVENT DATE: 20180728
